FAERS Safety Report 18584806 (Version 5)
Quarter: 2021Q3

REPORT INFORMATION
  Report Type: Report from Study
  Country: US (occurrence: US)
  Receive Date: 20201207
  Receipt Date: 20210825
  Transmission Date: 20211014
  Serious: No
  Sender: FDA-Public Use
  Company Number: NVSC2020US319434

PATIENT
  Age: 23 Year
  Sex: Male

DRUGS (3)
  1. ILARIS [Suspect]
     Active Substance: CANAKINUMAB
     Dosage: 240 MG, Q4W
     Route: 058
     Dates: start: 20200626
  2. ILARIS [Suspect]
     Active Substance: CANAKINUMAB
     Indication: JUVENILE IDIOPATHIC ARTHRITIS
     Dosage: 240 MG, Q4W
     Route: 058
  3. ILARIS [Suspect]
     Active Substance: CANAKINUMAB
     Route: 058

REACTIONS (3)
  - Malaise [Unknown]
  - COVID-19 [Unknown]
  - Unevaluable event [Unknown]

NARRATIVE: CASE EVENT DATE: 20210808
